FAERS Safety Report 8954730 (Version 1)
Quarter: 2012Q4

REPORT INFORMATION
  Report Type: Spontaneous
  Country: US (occurrence: None)
  Receive Date: 20121205
  Receipt Date: 20121205
  Transmission Date: 20130627
  Serious: Yes (Other)
  Sender: FDA-Public Use
  Company Number: None

PATIENT
  Sex: Female
  Weight: 54.43 kg

DRUGS (1)
  1. FOSAMAX [Suspect]
     Indication: OSTEOPOROSIS
     Dosage: once a week dosage
     Dates: start: 201209, end: 201210

REACTIONS (5)
  - Nausea [None]
  - Retching [None]
  - Regurgitation [None]
  - Weight decreased [None]
  - Decreased appetite [None]
